FAERS Safety Report 6318544-4 (Version None)
Quarter: 2009Q3

REPORT INFORMATION
  Report Type: 
  Country: None (occurrence: None)
  Receive Date: 20090821
  Receipt Date: 20090813
  Transmission Date: 20100115
  Serious: Yes (Other)
  Sender: FDA-Public Use
  Company Number: PHHY2009DE34719

PATIENT
  Sex: Female

DRUGS (1)
  1. ESTRAGEST TTS [Suspect]
     Indication: HORMONE REPLACEMENT THERAPY
     Dosage: UNK
     Route: 062
     Dates: start: 20090501

REACTIONS (2)
  - PALPITATIONS [None]
  - TACHYCARDIA PAROXYSMAL [None]
